FAERS Safety Report 13162408 (Version 2)
Quarter: 2017Q1

REPORT INFORMATION
  Report Type: Spontaneous
  Country: PL (occurrence: PL)
  Receive Date: 20170130
  Receipt Date: 20170209
  Transmission Date: 20170428
  Serious: Yes (Other)
  Sender: FDA-Public Use
  Company Number: PL-ROCHE-1885383

PATIENT
  Sex: Female

DRUGS (3)
  1. AVASTIN [Suspect]
     Active Substance: BEVACIZUMAB
     Indication: OVARIAN CANCER
     Route: 065
  2. PACLITAXEL. [Concomitant]
     Active Substance: PACLITAXEL
  3. CARBOPLATIN. [Concomitant]
     Active Substance: CARBOPLATIN

REACTIONS (1)
  - Forearm fracture [Unknown]
